APPROVED DRUG PRODUCT: SYNTOCINON
Active Ingredient: OXYTOCIN
Strength: 10USP UNITS/ML
Dosage Form/Route: INJECTABLE;INJECTION
Application: N018245 | Product #001
Applicant: NOVARTIS PHARMACEUTICALS CORP
Approved: Approved Prior to Jan 1, 1982 | RLD: No | RS: No | Type: DISCN